FAERS Safety Report 10331485 (Version 1)
Quarter: 2014Q3

REPORT INFORMATION
  Report Type: Spontaneous
  Country: US (occurrence: US)
  Receive Date: 20140722
  Receipt Date: 20140722
  Transmission Date: 20150326
  Serious: No
  Sender: FDA-Public Use
  Company Number: US-PFIZER INC-2014201771

PATIENT

DRUGS (1)
  1. CRIZOTINIB [Suspect]
     Active Substance: CRIZOTINIB
     Indication: BRAIN NEOPLASM MALIGNANT
     Dosage: UNK

REACTIONS (3)
  - Disease progression [Unknown]
  - Off label use [Unknown]
  - Brain neoplasm malignant [Unknown]
